FAERS Safety Report 6380057-1 (Version None)
Quarter: 2009Q3

REPORT INFORMATION
  Report Type: 
  Country: None (occurrence: None)
  Receive Date: 20090928
  Receipt Date: 20090701
  Transmission Date: 20100115
  Serious: Yes (Hospitalization, Other)
  Sender: FDA-Public Use
  Company Number: ES-MERCK-0806ESP00009

PATIENT
  Age: 64 Year
  Sex: Female

DRUGS (11)
  1. FOSAMAX [Suspect]
     Indication: OSTEOPOROSIS
     Route: 048
     Dates: start: 19970401
  2. FOSAMAX [Suspect]
     Route: 048
     Dates: end: 20070301
  3. METHYLPREDNISOLONE [Concomitant]
     Indication: RHEUMATOID ARTHRITIS
     Route: 048
  4. CALCIUM CARBONATE [Concomitant]
     Route: 048
  5. GLYBURIDE [Concomitant]
     Indication: DIABETES MELLITUS
     Route: 065
     Dates: start: 19970404
  6. GLYBURIDE [Concomitant]
     Route: 065
     Dates: start: 20060101
  7. DICLOFENAC SODIUM [Concomitant]
     Route: 054
  8. METHOTREXATE [Concomitant]
     Indication: RHEUMATOID ARTHRITIS
     Route: 065
  9. MISOPROSTOL [Concomitant]
     Route: 065
     Dates: end: 20070101
  10. PANTOPRAZOLE [Concomitant]
     Route: 065
     Dates: start: 20070101
  11. LANSOPRAZOLE [Concomitant]
     Route: 065
     Dates: start: 20070101

REACTIONS (12)
  - CATARACT [None]
  - DEPRESSION [None]
  - DIABETES MELLITUS [None]
  - DRUG INEFFECTIVE [None]
  - GASTROINTESTINAL DISORDER [None]
  - HYPERSENSITIVITY [None]
  - METATARSALGIA [None]
  - OSTEONECROSIS [None]
  - PATHOLOGICAL FRACTURE [None]
  - SOMATOFORM DISORDER [None]
  - STRESS FRACTURE [None]
  - SUICIDAL IDEATION [None]
